FAERS Safety Report 20458868 (Version 1)
Quarter: 2022Q1

REPORT INFORMATION
  Report Type: Spontaneous
  Country: US (occurrence: US)
  Receive Date: 20220211
  Receipt Date: 20220211
  Transmission Date: 20220423
  Serious: Yes (Hospitalization)
  Sender: FDA-Public Use
  Company Number: US-BRISTOL-MYERS SQUIBB COMPANY-BMS-2022-014125

PATIENT
  Age: 58 Year
  Sex: Female
  Weight: 68.9 kg

DRUGS (1)
  1. DROXIA [Suspect]
     Active Substance: HYDROXYUREA
     Indication: Mast cell activation syndrome
     Dosage: 200 MILLIGRAM, USUALLY 4 CAPSULES UP TO 5 CAPSULES, PER DAY
     Route: 048
     Dates: start: 2018

REACTIONS (5)
  - Hospitalisation [Unknown]
  - Product colour issue [Unknown]
  - Malaise [Unknown]
  - Drug hypersensitivity [Unknown]
  - Intentional product use issue [Unknown]
